FAERS Safety Report 9495649 (Version 6)
Quarter: 2013Q4

REPORT INFORMATION
  Report Type: Spontaneous
  Country: US (occurrence: US)
  Receive Date: 20130903
  Receipt Date: 20131205
  Transmission Date: 20140711
  Serious: Yes (Hospitalization, Other)
  Sender: FDA-Public Use
  Company Number: CHPA2013US013493

PATIENT
  Age: 61 Year
  Sex: Female

DRUGS (2)
  1. ASCRIPTIN BUFFERED REG STRENGTH TABLETS [Suspect]
     Indication: FIBROMYALGIA
     Dosage: 1 DF, PRN
     Route: 048
  2. ASCRIPTIN BUFFERED REG STRENGTH TABLETS [Suspect]
     Indication: ARTHRALGIA
     Dosage: 1 DF, PRN
     Route: 048

REACTIONS (9)
  - Nephrolithiasis [Recovered/Resolved]
  - Concomitant disease aggravated [Recovered/Resolved]
  - Endometrial cancer [Recovered/Resolved]
  - Pneumonia [Recovered/Resolved]
  - Bronchitis [Recovered/Resolved]
  - Influenza like illness [Recovered/Resolved]
  - Diarrhoea [Recovering/Resolving]
  - Malaise [Recovering/Resolving]
  - Therapeutic response decreased [Unknown]
